FAERS Safety Report 14263437 (Version 4)
Quarter: 2019Q3

REPORT INFORMATION
  Report Type: Report from Study
  Country: JP (occurrence: JP)
  Receive Date: 20171208
  Receipt Date: 20190729
  Transmission Date: 20191004
  Serious: Yes (Other)
  Sender: FDA-Public Use
  Company Number: JP-DSJP-DSJ-2017-157162

PATIENT

DRUGS (16)
  1. COVERSYL [Concomitant]
     Active Substance: PERINDOPRIL
     Dosage: 2MG/DAY
     Route: 048
  2. FERRUM [Concomitant]
     Active Substance: FERROUS FUMARATE
     Dosage: 100MG/DAY
     Route: 048
     Dates: start: 20170730
  3. TETRAMIDE [Concomitant]
     Active Substance: MIANSERIN
     Dosage: 10MG/DAY
     Route: 048
     Dates: start: 20170820
  4. LIVALO [Concomitant]
     Active Substance: PITAVASTATIN CALCIUM
     Dosage: 1MG/DAY
     Route: 048
  5. ROZEREM [Concomitant]
     Active Substance: RAMELTEON
     Dosage: 8MG/DAY
     Route: 048
     Dates: start: 20170725
  6. GASTER [Concomitant]
     Active Substance: FAMOTIDINE
     Dosage: 20MG/DAY
     Route: 048
  7. MAGMITT [Concomitant]
     Active Substance: MAGNESIUM OXIDE
     Dosage: 990MG/DAY
     Route: 048
     Dates: start: 20170805
  8. ARICEPT [Concomitant]
     Active Substance: DONEPEZIL HYDROCHLORIDE
     Dosage: 5MG/DAY
     Route: 048
  9. ALDACTONE A [Suspect]
     Active Substance: SPIRONOLACTONE
     Dosage: 25MG/DAY
     Route: 048
     Dates: start: 20170721, end: 20170727
  10. TAMBOCOR [Concomitant]
     Active Substance: FLECAINIDE ACETATE
     Indication: ATRIAL FIBRILLATION
     Dosage: 100MG/DAY
     Route: 048
     Dates: start: 20170722, end: 20170821
  11. EDOXABAN [Suspect]
     Active Substance: EDOXABAN TOSYLATE
     Indication: ATRIAL FIBRILLATION
     Dosage: 30 MG, QD
     Route: 048
     Dates: start: 20170720
  12. BELSOMRA [Concomitant]
     Active Substance: SUVOREXANT
     Dosage: 15MG/DAY
     Route: 048
     Dates: start: 20170721
  13. DIART [Concomitant]
     Active Substance: AZOSEMIDE
     Dosage: 30MG/DAY
     Route: 048
     Dates: start: 20170721, end: 20170731
  14. DIART [Concomitant]
     Active Substance: AZOSEMIDE
     Dosage: 30MG/DAY
     Route: 048
     Dates: start: 20170825
  15. LUPRAC [Concomitant]
     Active Substance: TORSEMIDE
     Dosage: 4MG/DAY
     Route: 048
     Dates: start: 20170807, end: 20170825
  16. SUNRYTHM [Concomitant]
     Active Substance: PILSICAINIDE HYDROCHLORIDE
     Indication: ATRIAL FIBRILLATION
     Dosage: 3CAPSULE/DAY
     Route: 048
     Dates: start: 20170822

REACTIONS (4)
  - Renal impairment [Recovered/Resolved]
  - Cystitis haemorrhagic [Recovered/Resolved]
  - Liver disorder [Recovering/Resolving]
  - Myoclonus [Not Recovered/Not Resolved]

NARRATIVE: CASE EVENT DATE: 20170727
